FAERS Safety Report 16894560 (Version 2)
Quarter: 2019Q4

REPORT INFORMATION
  Report Type: Spontaneous
  Country: US (occurrence: US)
  Receive Date: 20191008
  Receipt Date: 20191024
  Transmission Date: 20200122
  Serious: No
  Sender: FDA-Public Use
  Company Number: US-PFIZER INC-2019428623

PATIENT
  Age: 76 Year
  Sex: Female

DRUGS (1)
  1. BESPONSA [Suspect]
     Active Substance: INOTUZUMAB OZOGAMICIN
     Indication: ACUTE MYELOID LEUKAEMIA
     Dosage: UNK, CYCLIC (0.9MG/20ML INJ/ DOSE: 1.2MG IV DAY 1, THEN INFUSE 0.7MG ON DAYS 8 AND 15 EVERY 21DAYS)
     Route: 042
     Dates: start: 20190831

REACTIONS (4)
  - Off label use [Unknown]
  - Lip injury [Unknown]
  - Product use in unapproved indication [Unknown]
  - Fall [Unknown]

NARRATIVE: CASE EVENT DATE: 20190831
